FAERS Safety Report 24387671 (Version 1)
Quarter: 2024Q4

REPORT INFORMATION
  Report Type: Spontaneous
  Country: CN (occurrence: CN)
  Receive Date: 20241002
  Receipt Date: 20241002
  Transmission Date: 20250115
  Serious: Yes (Other)
  Sender: BAXTER
  Company Number: CN-BAXTER-2024BAX025698

PATIENT
  Age: 8 Decade
  Sex: Female

DRUGS (5)
  1. CYCLOPHOSPHAMIDE [Suspect]
     Active Substance: CYCLOPHOSPHAMIDE
     Indication: Intestinal T-cell lymphoma stage I
     Dosage: RECEIVED TWO CYCLES OF CHOP
     Route: 065
  2. DOXORUBICIN HYDROCHLORIDE [Suspect]
     Active Substance: DOXORUBICIN HYDROCHLORIDE
     Indication: Intestinal T-cell lymphoma stage I
     Dosage: RECEIVED TWO CYCLES OF CHOP
     Route: 065
  3. VINCRISTINE [Suspect]
     Active Substance: VINCRISTINE
     Indication: Intestinal T-cell lymphoma stage I
     Dosage: RECEIVED TWO CYCLES OF CHOP
     Route: 065
  4. PREDNISONE [Suspect]
     Active Substance: PREDNISONE
     Indication: Intestinal T-cell lymphoma stage I
     Dosage: RECEIVED TWO CYCLES OF CHOP
     Route: 065
  5. TUCIDINOSTAT [Concomitant]
     Active Substance: TUCIDINOSTAT
     Indication: Intestinal T-cell lymphoma stage I
     Dosage: 30 MG TWICE A WEEK AFTER DISCHARGE
     Route: 065

REACTIONS (3)
  - Intestinal perforation [Not Recovered/Not Resolved]
  - Abdominal pain [Not Recovered/Not Resolved]
  - Pyrexia [Not Recovered/Not Resolved]
